FAERS Safety Report 15392943 (Version 1)
Quarter: 2018Q3

REPORT INFORMATION
  Report Type: Spontaneous
  Country: GB (occurrence: GB)
  Receive Date: 20180917
  Receipt Date: 20180917
  Transmission Date: 20181010
  Serious: Yes (Disabling, Other)
  Sender: FDA-Public Use
  Company Number: GB-TEVA-2018-GB-955016

PATIENT
  Age: 70 Year
  Sex: Female

DRUGS (3)
  1. ACCRETE D3 [Concomitant]
     Route: 065
  2. BISOPROLOL [Concomitant]
     Active Substance: BISOPROLOL
     Route: 065
  3. ALENDRONIC ACID [Suspect]
     Active Substance: ALENDRONIC ACID
     Indication: OSTEOPOROSIS PROPHYLAXIS
     Route: 048
     Dates: start: 2006, end: 2016

REACTIONS (2)
  - Body height decreased [Unknown]
  - Intervertebral disc degeneration [Not Recovered/Not Resolved]
